FAERS Safety Report 23423636 (Version 2)
Quarter: 2024Q3

REPORT INFORMATION
  Report Type: Spontaneous
  Country: US (occurrence: US)
  Receive Date: 20240119
  Receipt Date: 20240723
  Transmission Date: 20241016
  Serious: No
  Sender: CSL BEHRING
  Company Number: US-BEH-2024167496

PATIENT
  Age: 63 Year
  Sex: Male

DRUGS (5)
  1. HIZENTRA [Suspect]
     Active Substance: HUMAN IMMUNOGLOBULIN G
     Indication: Asthma
     Dosage: 15 GRAM, QW
     Route: 058
     Dates: start: 20230812
  2. HIZENTRA [Suspect]
     Active Substance: HUMAN IMMUNOGLOBULIN G
     Dosage: 15 G, QW
     Route: 058
  3. ADDERALL [Concomitant]
     Active Substance: AMPHETAMINE ASPARTATE\AMPHETAMINE SULFATE\DEXTROAMPHETAMINE SACCHARATE\DEXTROAMPHETAMINE SULFATE
  4. FASENRA [Concomitant]
     Active Substance: BENRALIZUMAB
  5. FASENRA [Concomitant]
     Active Substance: BENRALIZUMAB

REACTIONS (11)
  - Asthma [Not Recovered/Not Resolved]
  - Impaired quality of life [Not Recovered/Not Resolved]
  - Off label use [Unknown]
  - Asthma [Not Recovered/Not Resolved]
  - Cough [Not Recovered/Not Resolved]
  - Product dose omission issue [Unknown]
  - Impaired quality of life [Not Recovered/Not Resolved]
  - Product use issue [Not Recovered/Not Resolved]
  - Asthma [Not Recovered/Not Resolved]
  - Impaired quality of life [Recovered/Resolved]
  - Product dose omission issue [Recovered/Resolved]

NARRATIVE: CASE EVENT DATE: 20240101
